FAERS Safety Report 4400918-X (Version None)
Quarter: 2004Q3

REPORT INFORMATION
  Report Type: 
  Country: None (occurrence: None)
  Receive Date: 20040907
  Receipt Date: 20030808
  Transmission Date: 20050211
  Serious: No
  Sender: FDA-Public Use
  Company Number: US-BRISTOL-MYERS SQUIBB COMPANY-12350971

PATIENT
  Age: 72 Year
  Sex: Male
  Weight: 91 kg

DRUGS (5)
  1. COUMADIN [Suspect]
     Indication: ATRIAL FIBRILLATION
     Dosage: DOASAGE VARING DUE TO INR AND PT LEVELS.  INTERRUPTED X2 DUE TO ELEVATED INR AND PT LEVELS.
     Route: 048
     Dates: start: 20030317
  2. ZOCOR [Concomitant]
  3. GLUCOPHAGE [Concomitant]
  4. ATENOLOL [Concomitant]
  5. LOTREL [Concomitant]

REACTIONS (2)
  - INTERNATIONAL NORMALISED RATIO ABNORMAL [None]
  - PROTHROMBIN TIME ABNORMAL [None]
